FAERS Safety Report 22380704 (Version 3)
Quarter: 2023Q2

REPORT INFORMATION
  Report Type: Report from Study
  Country: NL (occurrence: NL)
  Receive Date: 20230529
  Receipt Date: 20230607
  Transmission Date: 20230721
  Serious: Yes (Hospitalization, Other)
  Sender: FDA-Public Use
  Company Number: NL-ABBVIE-5183087

PATIENT
  Age: 80 Year
  Sex: Female

DRUGS (5)
  1. CARBIDOPA\LEVODOPA [Suspect]
     Active Substance: CARBIDOPA\LEVODOPA
     Indication: Parkinson^s disease
     Dosage: MD 10.0 ML; CD 3.0 ML/H; ED 1.5 ML; ADDITIONAL TUBE FILING: 3.0ML
     Route: 050
     Dates: start: 20220328
  2. CARBIDOPA\LEVODOPA [Suspect]
     Active Substance: CARBIDOPA\LEVODOPA
     Dosage: MD:10.0ML; CD:3.6ML/H; ED:3.5ML?DISCONTINUED IN MAR 2022
     Route: 050
     Dates: start: 20220323
  3. CARBIDOPA\LEVODOPA [Suspect]
     Active Substance: CARBIDOPA\LEVODOPA
     Dosage: MD:10.0ML; CD:3.9ML/H; ED:5.5ML??DISCONTINUED  IN 2023
     Route: 050
     Dates: start: 20230523
  4. CARBIDOPA\LEVODOPA [Suspect]
     Active Substance: CARBIDOPA\LEVODOPA
     Dosage: CND: 3.2 ML/HR, END: 3.5 ML??START AND END DATE IS 2023
     Route: 050
  5. CARBIDOPA\LEVODOPA [Suspect]
     Active Substance: CARBIDOPA\LEVODOPA
     Dosage: MD:10.0ML; CD:3.6ML/H; ED:3.5ML??START DATE 2023
     Route: 050

REACTIONS (28)
  - Hospitalisation [Recovered/Resolved]
  - Eye movement disorder [Recovered/Resolved]
  - Feeling abnormal [Recovered/Resolved]
  - Abdominal pain [Recovering/Resolving]
  - Device loosening [Recovered/Resolved]
  - Pain [Not Recovered/Not Resolved]
  - Unevaluable event [Recovered/Resolved]
  - Restless arm syndrome [Not Recovered/Not Resolved]
  - Flatulence [Not Recovered/Not Resolved]
  - Medical device site pain [Recovered/Resolved]
  - Device dislocation [Recovered/Resolved]
  - Incorrect dose administered by device [Unknown]
  - Stoma complication [Not Recovered/Not Resolved]
  - Fatigue [Unknown]
  - Therapeutic product effect decreased [Recovering/Resolving]
  - Stoma site hypersensitivity [Not Recovered/Not Resolved]
  - Tremor [Unknown]
  - Dyskinesia [Not Recovered/Not Resolved]
  - Heart rate increased [Recovered/Resolved]
  - Unevaluable event [Recovered/Resolved]
  - Abdominal pain [Recovering/Resolving]
  - Tremor [Recovered/Resolved]
  - Muscle rigidity [Unknown]
  - Stoma site discharge [Not Recovered/Not Resolved]
  - Grimacing [Unknown]
  - Stoma site erythema [Not Recovered/Not Resolved]
  - Unevaluable event [Not Recovered/Not Resolved]
  - On and off phenomenon [Unknown]

NARRATIVE: CASE EVENT DATE: 20230501
